FAERS Safety Report 17414509 (Version 1)
Quarter: 2020Q1

REPORT INFORMATION
  Report Type: Report from Study
  Country: US (occurrence: US)
  Receive Date: 20200213
  Receipt Date: 20200213
  Transmission Date: 20200409
  Serious: Yes (Other)
  Sender: FDA-Public Use
  Company Number: US-IPSEN BIOPHARMACEUTICALS, INC.-2019-21855

PATIENT
  Age: 46 Year
  Sex: Female
  Weight: 193 kg

DRUGS (2)
  1. SOMATULINE DEPOT [Suspect]
     Active Substance: LANREOTIDE ACETATE
     Route: 030
     Dates: start: 201911
  2. SOMATULINE DEPOT [Suspect]
     Active Substance: LANREOTIDE ACETATE
     Indication: ACROMEGALY
     Dosage: UNKNOWN
     Route: 030
     Dates: start: 20190812

REACTIONS (8)
  - Weight increased [Not Recovered/Not Resolved]
  - Symptom recurrence [Not Recovered/Not Resolved]
  - Abdominal discomfort [Recovered/Resolved]
  - Fatigue [Not Recovered/Not Resolved]
  - Incorrect route of product administration [Unknown]
  - Nausea [Not Recovered/Not Resolved]
  - Inappropriate schedule of product administration [Unknown]
  - Asthenia [Not Recovered/Not Resolved]

NARRATIVE: CASE EVENT DATE: 20190812
